FAERS Safety Report 23226225 (Version 1)
Quarter: 2023Q4

REPORT INFORMATION
  Report Type: Spontaneous
  Country: US (occurrence: None)
  Receive Date: 20231124
  Receipt Date: 20231124
  Transmission Date: 20240109
  Serious: No
  Sender: FDA-Public Use
  Company Number: 2023A266611

PATIENT

DRUGS (3)
  1. ROSUVASTATIN [Suspect]
     Active Substance: ROSUVASTATIN
     Route: 048
  2. BOSULIF [Suspect]
     Active Substance: BOSUTINIB MONOHYDRATE
     Indication: Chronic myeloid leukaemia
     Dosage: TAKE 4 TABLETS (400 MG) BY MOUTH DAILY
     Route: 048
  3. BOSULIF [Suspect]
     Active Substance: BOSUTINIB MONOHYDRATE
     Indication: Metastatic renal cell carcinoma
     Dosage: TAKE 4 TABLETS (400 MG) BY MOUTH DAILY
     Route: 048

REACTIONS (6)
  - Cough [Unknown]
  - Dry mouth [Unknown]
  - Gout [Unknown]
  - Fatigue [Unknown]
  - Rash [Unknown]
  - Dizziness [Unknown]
